FAERS Safety Report 7589296-5 (Version None)
Quarter: 2011Q3

REPORT INFORMATION
  Report Type: 
  Country: None (occurrence: None)
  Receive Date: 20110705
  Receipt Date: 20110624
  Transmission Date: 20111222
  Serious: Yes (Death, Other)
  Sender: FDA-Public Use
  Company Number: GB-BAXTER-2011BH004229

PATIENT
  Age: 42 Year
  Sex: Female

DRUGS (5)
  1. DOXORUBICIN HCL [Suspect]
     Route: 065
  2. DEXRAZOXANE [Suspect]
     Indication: METASTASES TO LUNG
     Route: 065
  3. DOXORUBICIN HCL [Suspect]
     Indication: METASTASES TO LUNG
     Route: 065
  4. IFOSFAMIDE [Suspect]
     Indication: PRODUCT USED FOR UNKNOWN INDICATION
     Route: 065
  5. RADIOTHERAPY [Suspect]
     Indication: PRODUCT USED FOR UNKNOWN INDICATION
     Route: 065

REACTIONS (5)
  - PATHOLOGICAL FRACTURE [None]
  - OSTEOMYELITIS FUNGAL [None]
  - NEUTROPENIC SEPSIS [None]
  - SPINAL CORD COMPRESSION [None]
  - NEOPLASM MALIGNANT [None]
